FAERS Safety Report 16867768 (Version 1)
Quarter: 2019Q3

REPORT INFORMATION
  Report Type: Spontaneous
  Country: US (occurrence: US)
  Receive Date: 20190806
  Receipt Date: 20190806
  Transmission Date: 20191005
  Serious: No
  Sender: FDA-Public Use
  Company Number: None

PATIENT
  Age: 48 Year
  Sex: Male

DRUGS (1)
  1. SUTENT [Suspect]
     Active Substance: SUNITINIB MALATE
     Route: 048
     Dates: start: 20190403

REACTIONS (6)
  - Dyspepsia [None]
  - Gastric disorder [None]
  - Sensitive skin [None]
  - Visual impairment [None]
  - Condition aggravated [None]
  - Fatigue [None]

NARRATIVE: CASE EVENT DATE: 20190730
